FAERS Safety Report 18157430 (Version 1)
Quarter: 2020Q3

REPORT INFORMATION
  Report Type: Spontaneous
  Country: US (occurrence: US)
  Receive Date: 20200817
  Receipt Date: 20200817
  Transmission Date: 20201103
  Serious: No
  Sender: FDA-Public Use
  Company Number: US-SPECGX-T201909085

PATIENT
  Age: 59 Year
  Sex: Female
  Weight: 50 kg

DRUGS (6)
  1. OXYCODONE [Suspect]
     Active Substance: OXYCODONE
     Indication: TRIGEMINAL NEURALGIA
     Dosage: 15 MILLIGRAM, TID
     Route: 048
  2. IBUPROFEN. [Concomitant]
     Active Substance: IBUPROFEN
     Indication: PAIN
     Dosage: UNK (AS NEEDED)
     Route: 065
  3. KLONOPIN [Concomitant]
     Active Substance: CLONAZEPAM
     Indication: POOR QUALITY SLEEP
     Dosage: 0.5 MILLIGRAM, QHS (CUTTING 1MG TABLET INTO HALF AT BED TIME)
     Route: 048
  4. OXYCODONE [Suspect]
     Active Substance: OXYCODONE
     Indication: PAIN
  5. OXYCODONE [Suspect]
     Active Substance: OXYCODONE
     Indication: NERVE INJURY
     Dosage: 7.5 MILLIGRAM, TID (15 MG CUT IT IN HALF, ONE HALF TABLET)
     Route: 048
  6. MINIVELLE [Concomitant]
     Active Substance: ESTRADIOL
     Indication: HORMONE THERAPY
     Dosage: UNK
     Route: 065
     Dates: start: 1995

REACTIONS (8)
  - Dizziness [Not Recovered/Not Resolved]
  - Gait disturbance [Not Recovered/Not Resolved]
  - Loss of personal independence in daily activities [Not Recovered/Not Resolved]
  - Wrong technique in product usage process [Unknown]
  - Nausea [Not Recovered/Not Resolved]
  - Feeling jittery [Not Recovered/Not Resolved]
  - Tremor [Not Recovered/Not Resolved]
  - Therapeutic product effect increased [Unknown]

NARRATIVE: CASE EVENT DATE: 201912
